FAERS Safety Report 16241146 (Version 3)
Quarter: 2024Q4

REPORT INFORMATION
  Report Type: Report from Study
  Country: BR (occurrence: BR)
  Receive Date: 20190425
  Receipt Date: 20241105
  Transmission Date: 20250115
  Serious: Yes (Hospitalization, Other)
  Sender: BIOGEN
  Company Number: BR-BIOGEN-2019BI00728761

PATIENT
  Age: 52 Year
  Sex: Female
  Weight: 68.5 kg

DRUGS (1)
  1. TYSABRI [Suspect]
     Active Substance: NATALIZUMAB
     Indication: Multiple sclerosis
     Route: 050
     Dates: start: 201206

REACTIONS (6)
  - Myocardial infarction [Unknown]
  - Multiple sclerosis relapse [Recovered/Resolved]
  - Diabetes mellitus [Not Recovered/Not Resolved]
  - Urinary tract infection [Unknown]
  - Viral infection [Unknown]
  - Blood pressure increased [Unknown]

NARRATIVE: CASE EVENT DATE: 20190221
